FAERS Safety Report 20021310 (Version 2)
Quarter: 2021Q4

REPORT INFORMATION
  Report Type: Spontaneous
  Country: US (occurrence: US)
  Receive Date: 20211101
  Receipt Date: 20211101
  Transmission Date: 20220303
  Serious: Yes (Other)
  Sender: FDA-Public Use
  Company Number: US-CELGENE-USA-20211007446

PATIENT
  Age: 78 Year
  Sex: Female
  Weight: 73.094 kg

DRUGS (5)
  1. POMALYST [Suspect]
     Active Substance: POMALIDOMIDE
     Indication: Plasma cell myeloma
     Dosage: 4 MILLIGRAM
     Route: 048
     Dates: start: 202002
  2. POMALYST [Suspect]
     Active Substance: POMALIDOMIDE
     Dosage: 2-1 MG
     Route: 048
     Dates: start: 202003
  3. POMALYST [Suspect]
     Active Substance: POMALIDOMIDE
     Dosage: 1-2 MG
     Route: 048
     Dates: start: 202007
  4. POMALYST [Suspect]
     Active Substance: POMALIDOMIDE
     Dosage: 1-2 MG
     Route: 048
     Dates: start: 202101
  5. POMALYST [Suspect]
     Active Substance: POMALIDOMIDE
     Dosage: 2 MILLIGRAM
     Route: 048
     Dates: start: 202103

REACTIONS (2)
  - Traumatic fracture [Not Recovered/Not Resolved]
  - Fall [Recovered/Resolved]

NARRATIVE: CASE EVENT DATE: 20211011
